FAERS Safety Report 18844860 (Version 1)
Quarter: 2021Q1

REPORT INFORMATION
  Report Type: Spontaneous
  Country: CH (occurrence: CH)
  Receive Date: 20210203
  Receipt Date: 20210203
  Transmission Date: 20210419
  Serious: No
  Sender: FDA-Public Use
  Company Number: CH-EXELIXIS-CABO-20028597

PATIENT
  Sex: Female

DRUGS (3)
  1. LAXIPEG [Concomitant]
  2. CABOMETYX [Suspect]
     Active Substance: CABOZANTINIB S-MALATE
     Indication: OSTEOSARCOMA METASTATIC
     Dosage: 60 MG, QD
     Route: 048
     Dates: start: 20200417, end: 20200515
  3. CABOMETYX [Suspect]
     Active Substance: CABOZANTINIB S-MALATE
     Dosage: 20 MG
     Route: 048
     Dates: start: 20200606

REACTIONS (5)
  - Mucosal inflammation [Unknown]
  - Off label use [Unknown]
  - Hypothyroidism [Unknown]
  - Oral pain [Unknown]
  - Abdominal pain [Unknown]
